FAERS Safety Report 9735053 (Version 2)
Quarter: 2013Q4

REPORT INFORMATION
  Report Type: Not Available
  Country: CA (occurrence: CA)
  Receive Date: 20131206
  Receipt Date: 20131206
  Transmission Date: 20140711
  Serious: Yes (Other)
  Sender: FDA-Public Use
  Company Number: 2013SP003432

PATIENT
  Age: 38 Year
  Sex: Male
  Weight: 113 kg

DRUGS (4)
  1. LATUDA [Suspect]
     Indication: BIPOLAR DISORDER
     Dates: start: 201305, end: 201305
  2. LAMOTRIGINE [Concomitant]
  3. LITHIUM [Concomitant]
  4. EFFEXOR [Concomitant]

REACTIONS (8)
  - Altered state of consciousness [Recovered/Resolved]
  - Impaired driving ability [Recovered/Resolved]
  - Feeling drunk [Recovered/Resolved]
  - Feeling abnormal [Recovered/Resolved]
  - Agitation [Recovered/Resolved]
  - Irritability [Recovered/Resolved]
  - Dizziness [Recovered/Resolved]
  - Gait disturbance [Recovered/Resolved]
